FAERS Safety Report 16232887 (Version 1)
Quarter: 2019Q2

REPORT INFORMATION
  Report Type: Spontaneous
  Country: US (occurrence: US)
  Receive Date: 20190424
  Receipt Date: 20190424
  Transmission Date: 20190711
  Serious: No
  Sender: FDA-Public Use
  Company Number: US-SA-2019SA084557

PATIENT
  Age: 71 Year
  Sex: Female
  Weight: 53 kg

DRUGS (2)
  1. ONDANSETRON [Suspect]
     Active Substance: ONDANSETRON
     Indication: VOMITING
     Dosage: UNK
  2. ALLEGRA ALLERGY [Suspect]
     Active Substance: FEXOFENADINE HYDROCHLORIDE
     Indication: VOMITING
     Dosage: 180 MG, UNK
     Route: 048
     Dates: start: 20190325, end: 20190326

REACTIONS (2)
  - Pyrexia [Recovering/Resolving]
  - Gastroenteritis viral [Unknown]
